FAERS Safety Report 15482665 (Version 2)
Quarter: 2020Q2

REPORT INFORMATION
  Report Type: Report from Study
  Country: CN (occurrence: CN)
  Receive Date: 20181010
  Receipt Date: 20200626
  Transmission Date: 20200713
  Serious: Yes (Hospitalization)
  Sender: FDA-Public Use
  Company Number: CN-ASTRAZENECA-2018SF31588

PATIENT
  Age: 21683 Day
  Sex: Male

DRUGS (44)
  1. DURVALUMAB. [Suspect]
     Active Substance: DURVALUMAB
     Indication: NON-SMALL CELL LUNG CANCER
     Route: 042
     Dates: start: 20171206, end: 20171206
  2. DURVALUMAB. [Suspect]
     Active Substance: DURVALUMAB
     Indication: NON-SMALL CELL LUNG CANCER
     Route: 042
     Dates: start: 20180131, end: 20181031
  3. OXYCODONE HYDROCHLORIDE PROLONGED- RELEASE TABLETS [Concomitant]
     Indication: PAIN
     Route: 048
     Dates: start: 20171206, end: 20171206
  4. OXYCODONE HYDROCHLORIDE PROLONGED- RELEASE TABLETS [Concomitant]
     Indication: PAIN
     Route: 048
     Dates: start: 20180319, end: 20180319
  5. METHYLPREDNISOLONE SODIUM SUCCINATE FOR INJECTION [Concomitant]
     Active Substance: METHYLPREDNISOLONE SODIUM SUCCINATE
     Indication: ANTIINFLAMMATORY THERAPY
     Route: 042
     Dates: start: 20180717, end: 20180719
  6. LANSOPRAZOLE FOR INJECTION [Concomitant]
     Indication: PROPHYLAXIS
     Route: 042
     Dates: start: 20180712, end: 20180722
  7. CALCIUM CARBONATE AND VITAMIN D3 TABLETS [Concomitant]
     Indication: OSTEOPOROSIS
     Route: 048
     Dates: start: 20180712
  8. BUDESONIDE SUSPENSION FOR INHALATION [Concomitant]
     Active Substance: BUDESONIDE
     Indication: ASTHMA
     Route: 055
     Dates: start: 20180712, end: 20180722
  9. TETRACAINE HYDROCHLORIDE JELLY [Concomitant]
     Indication: LOCAL ANAESTHESIA
     Dosage: 5.0G ONCE/SINGLE ADMINISTRATION
     Route: 061
     Dates: start: 20180713, end: 20180713
  10. DURVALUMAB. [Suspect]
     Active Substance: DURVALUMAB
     Indication: NON-SMALL CELL LUNG CANCER
     Route: 042
     Dates: start: 20170908, end: 20170908
  11. AMBROXOL HYDROCHLORIDE INJECTION [Concomitant]
     Indication: PRODUCTIVE COUGH
     Route: 042
     Dates: start: 20180712, end: 20180722
  12. DURVALUMAB. [Suspect]
     Active Substance: DURVALUMAB
     Indication: NON-SMALL CELL LUNG CANCER
     Route: 042
     Dates: start: 20180517, end: 20190517
  13. DURVALUMAB. [Suspect]
     Active Substance: DURVALUMAB
     Indication: NON-SMALL CELL LUNG CANCER
     Route: 042
     Dates: start: 20180614, end: 20180616
  14. TRAMADOL HYDROCHLORIDE SUSTAINED- RELEASE TABLETS [Concomitant]
     Indication: PAIN
     Route: 048
     Dates: start: 20180102, end: 20180103
  15. PARACETAMOL AND DIHYDROCODEINE TARTRATE TABLETS [Concomitant]
     Indication: ANALGESIC THERAPY
     Route: 048
     Dates: start: 20171103, end: 20171126
  16. OXYCODONE HYDROCHLORIDE PROLONGED- RELEASE TABLETS [Concomitant]
     Indication: PAIN
     Route: 048
     Dates: start: 20180315, end: 20180317
  17. COMPOUND IPRATROPIUM BROMIDE SOLUTION FOR INHALATION [Concomitant]
     Active Substance: IPRATROPIUM BROMIDE
     Indication: ASTHMA
     Route: 055
     Dates: start: 20180712, end: 20180722
  18. DURVALUMAB. [Suspect]
     Active Substance: DURVALUMAB
     Indication: NON-SMALL CELL LUNG CANCER
     Route: 042
     Dates: start: 20171104, end: 20171104
  19. FOLIC ACID TABLETS [Concomitant]
     Active Substance: FOLIC ACID
     Indication: PREMEDICATION
     Route: 048
     Dates: start: 20170824, end: 20170908
  20. OXYCODONE HYDROCHLORIDE PROLONGED- RELEASE TABLETS [Concomitant]
     Indication: PAIN
     Route: 048
     Dates: start: 20180104, end: 20180119
  21. OXYCODONE HYDROCHLORIDE PROLONGED- RELEASE TABLETS [Concomitant]
     Indication: PAIN
     Route: 048
     Dates: start: 20180325, end: 20180325
  22. OXYCODONE HYDROCHLORIDE PROLONGED- RELEASE TABLETS [Concomitant]
     Indication: PAIN
     Route: 048
     Dates: start: 20180720, end: 20180722
  23. AZITHROMYCIN FOR INJECTION [Concomitant]
     Active Substance: AZITHROMYCIN ANHYDROUS
     Indication: ANTIINFLAMMATORY THERAPY
     Route: 042
     Dates: start: 20180713, end: 20180717
  24. LIDOCAINE HYDROCHLORIDE INJECTION [Concomitant]
     Active Substance: LIDOCAINE HYDROCHLORIDE
     Indication: LOCAL ANAESTHESIA
     Dosage: 0.2G ONCE/SINGLE ADMINISTRATION
     Route: 062
     Dates: start: 20180714, end: 20180714
  25. DURVALUMAB. [Suspect]
     Active Substance: DURVALUMAB
     Indication: NON-SMALL CELL LUNG CANCER
     Route: 042
     Dates: start: 20171007, end: 20171007
  26. DURVALUMAB. [Suspect]
     Active Substance: DURVALUMAB
     Indication: NON-SMALL CELL LUNG CANCER
     Route: 042
     Dates: start: 20180831, end: 20180831
  27. PARACETAMOL AND DIHYDROCODEINE TARTRATE TABLETS [Concomitant]
     Indication: ANALGESIC THERAPY
     Route: 048
     Dates: start: 20171207
  28. VITAMIN B12 [Concomitant]
     Active Substance: CYANOCOBALAMIN
     Indication: PREMEDICATION
     Route: 058
     Dates: start: 20170824, end: 20170824
  29. TRAMADOL HYDROCHLORIDE SUSTAINED- RELEASE TABLETS [Concomitant]
     Indication: PAIN
     Route: 048
     Dates: start: 20171205, end: 20171206
  30. OXYCODONE HYDROCHLORIDE PROLONGED- RELEASE TABLETS [Concomitant]
     Indication: PAIN
     Route: 048
     Dates: start: 20180323, end: 20180323
  31. OXYCODONE HYDROCHLORIDE PROLONGED- RELEASE TABLETS [Concomitant]
     Indication: PAIN
     Route: 048
     Dates: start: 20180328, end: 20180328
  32. OXYCODONE HYDROCHLORIDE PROLONGED- RELEASE TABLETS [Concomitant]
     Indication: PAIN
     Route: 048
     Dates: start: 20180714, end: 20180718
  33. OXYCODONE HYDROCHLORIDE PROLONGED- RELEASE TABLETS [Concomitant]
     Indication: PAIN
     Route: 048
     Dates: start: 20180723, end: 20181008
  34. METHYLPREDNISOLONE SODIUM SUCCINATE FOR INJECTION [Concomitant]
     Active Substance: METHYLPREDNISOLONE SODIUM SUCCINATE
     Indication: ANTIINFLAMMATORY THERAPY
     Route: 042
     Dates: start: 20180712, end: 20180716
  35. DURVALUMAB. [Suspect]
     Active Substance: DURVALUMAB
     Indication: NON-SMALL CELL LUNG CANCER
     Route: 042
     Dates: start: 20180102, end: 20180102
  36. PARACETAMOL AND DIHYDROCODEINE TARTRATE TABLETS [Concomitant]
     Indication: ANALGESIC THERAPY
     Route: 048
     Dates: start: 20180102
  37. OXYCODONE HYDROCHLORIDE PROLONGED- RELEASE TABLETS [Concomitant]
     Indication: PAIN
     Route: 048
     Dates: start: 20180330, end: 20180330
  38. OXYCODONE HYDROCHLORIDE PROLONGED- RELEASE TABLETS [Concomitant]
     Indication: PAIN
     Route: 048
     Dates: start: 20180401, end: 20180403
  39. DURVALUMAB. [Suspect]
     Active Substance: DURVALUMAB
     Indication: NON-SMALL CELL LUNG CANCER
     Route: 042
     Dates: start: 20180228, end: 20180228
  40. PARACETAMOL AND DIHYDROCODEINE TARTRATE TABLETS [Concomitant]
     Indication: ANALGESIC THERAPY
     Route: 048
     Dates: start: 20170909, end: 20171014
  41. OXYCODONE HYDROCHLORIDE PROLONGED- RELEASE TABLETS [Concomitant]
     Indication: PAIN
     Route: 048
     Dates: start: 20180227, end: 20180311
  42. OXYCODONE HYDROCHLORIDE PROLONGED- RELEASE TABLETS [Concomitant]
     Indication: PAIN
     Route: 048
     Dates: start: 20180312, end: 20180312
  43. DALTEPARIN SODIUM INJECTION [Concomitant]
     Indication: PROPHYLAXIS
     Route: 057
     Dates: start: 20180712, end: 20180722
  44. LEVOFLOXACIN HYDROCHLORIDE INJECTION [Concomitant]
     Indication: ANTIINFLAMMATORY THERAPY
     Route: 042
     Dates: start: 20180716, end: 20180722

REACTIONS (1)
  - Pleural effusion [Recovered/Resolved]

NARRATIVE: CASE EVENT DATE: 20180904
